FAERS Safety Report 18347026 (Version 1)
Quarter: 2020Q4

REPORT INFORMATION
  Report Type: Spontaneous
  Country: FR (occurrence: FR)
  Receive Date: 20201006
  Receipt Date: 20201006
  Transmission Date: 20210114
  Serious: Yes (Other)
  Sender: FDA-Public Use
  Company Number: FR-AUROBINDO-AUR-APL-2020-050417

PATIENT
  Age: 72 Year
  Sex: Male
  Weight: 113 kg

DRUGS (1)
  1. SILODOSINE [Suspect]
     Active Substance: SILODOSIN
     Indication: DYSURIA
     Dosage: 8 MILLIGRAM, ONCE A DAY
     Route: 048
     Dates: start: 20171127

REACTIONS (2)
  - Dysphagia [Recovered/Resolved]
  - Foreign body in throat [Recovered/Resolved]

NARRATIVE: CASE EVENT DATE: 20171127
